FAERS Safety Report 6418852-2 (Version None)
Quarter: 2009Q4

REPORT INFORMATION
  Report Type: 
  Country: None (occurrence: None)
  Receive Date: 20091029
  Receipt Date: 20091020
  Transmission Date: 20100525
  Serious: Yes (Death, Hospitalization)
  Sender: FDA-Public Use
  Company Number: US-BIOGENIDEC-2007BI010832

PATIENT
  Age: 64 Year
  Sex: Female

DRUGS (1)
  1. AVONEX [Suspect]
     Indication: MULTIPLE SCLEROSIS
     Route: 030
     Dates: start: 20050201

REACTIONS (4)
  - CEREBROVASCULAR ACCIDENT [None]
  - HALLUCINATION [None]
  - INTRACARDIAC THROMBUS [None]
  - MULTIPLE SCLEROSIS RELAPSE [None]
